FAERS Safety Report 22119921 (Version 1)
Quarter: 2023Q1

REPORT INFORMATION
  Report Type: Spontaneous
  Country: US (occurrence: None)
  Receive Date: 20230321
  Receipt Date: 20230321
  Transmission Date: 20230418
  Serious: No
  Sender: FDA-Public Use
  Company Number: US-ROCHE-3150288

PATIENT
  Sex: Female

DRUGS (1)
  1. ERIVEDGE [Suspect]
     Active Substance: VISMODEGIB
     Indication: Neoplasm
     Dosage: UNKNOWN
     Route: 048

REACTIONS (3)
  - Ageusia [Unknown]
  - Alopecia [Unknown]
  - Off label use [Unknown]
